FAERS Safety Report 20511320 (Version 3)
Quarter: 2022Q1

REPORT INFORMATION
  Report Type: Spontaneous
  Country: US (occurrence: None)
  Receive Date: 20220224
  Receipt Date: 20220322
  Transmission Date: 20220423
  Serious: No
  Sender: FDA-Public Use
  Company Number: 2022A045148

PATIENT
  Age: 807 Month
  Sex: Female
  Weight: 136.1 kg

DRUGS (4)
  1. FASENRA [Suspect]
     Active Substance: BENRALIZUMAB
     Indication: Asthma
     Dosage: 30MG/ML EVERY 4 WEEKS FOR THE FIRST 3 DOSES THEN EVERY 8 WEEKS THEREAFTER
     Route: 058
     Dates: start: 202108
  2. FASENRA [Suspect]
     Active Substance: BENRALIZUMAB
     Indication: Asthma
     Route: 058
     Dates: start: 202109
  3. FASENRA [Suspect]
     Active Substance: BENRALIZUMAB
     Indication: Asthma
     Route: 058
     Dates: start: 202110
  4. FASENRA [Suspect]
     Active Substance: BENRALIZUMAB
     Indication: Asthma
     Route: 058
     Dates: start: 202112

REACTIONS (4)
  - Nasopharyngitis [Recovering/Resolving]
  - Swelling face [Not Recovered/Not Resolved]
  - Vision blurred [Not Recovered/Not Resolved]
  - Vocal cord dysfunction [Not Recovered/Not Resolved]

NARRATIVE: CASE EVENT DATE: 20211001
